FAERS Safety Report 9855070 (Version 1)
Quarter: 2014Q1

REPORT INFORMATION
  Report Type: Spontaneous
  Country: US (occurrence: US)
  Receive Date: 20140130
  Receipt Date: 20140130
  Transmission Date: 20141002
  Serious: No
  Sender: FDA-Public Use
  Company Number: US-BAYER-2014-015739

PATIENT
  Age: 56 Year
  Sex: Female
  Weight: 65.76 kg

DRUGS (1)
  1. ALEVE GELCAPS [Suspect]
     Indication: EYE PAIN
     Dosage: 1-2 DF, PRN
     Route: 048
     Dates: start: 201401

REACTIONS (2)
  - Drug ineffective [None]
  - Intentional drug misuse [None]
